FAERS Safety Report 17277760 (Version 1)
Quarter: 2020Q1

REPORT INFORMATION
  Report Type: Report from Study
  Country: GB (occurrence: GB)
  Receive Date: 20200116
  Receipt Date: 20200116
  Transmission Date: 20200409
  Serious: Yes (Hospitalization, Other)
  Sender: FDA-Public Use
  Company Number: NVSC2019GB080792

PATIENT
  Age: 73 Year
  Sex: Female

DRUGS (2)
  1. HYRIMOZ [Suspect]
     Active Substance: ADALIMUMAB-ADAZ
     Indication: PSORIATIC ARTHROPATHY
     Dosage: UNK UNK, Q2W
     Route: 058
     Dates: start: 20191129
  2. HYRIMOZ [Suspect]
     Active Substance: ADALIMUMAB-ADAZ
     Dosage: UNK UNK, Q2W
     Route: 058
     Dates: start: 20191210

REACTIONS (27)
  - Arthralgia [Not Recovered/Not Resolved]
  - Insomnia [Recovering/Resolving]
  - Neck pain [Unknown]
  - Pain [Recovering/Resolving]
  - Eye pain [Unknown]
  - Tearfulness [Unknown]
  - Colitis [Recovered/Resolved]
  - Abdominal pain [Not Recovered/Not Resolved]
  - Psoriatic arthropathy [Unknown]
  - Psoriasis [Recovering/Resolving]
  - Bone pain [Unknown]
  - Mood altered [Unknown]
  - Malaise [Unknown]
  - Pyrexia [Unknown]
  - Dry eye [Unknown]
  - Eye inflammation [Recovering/Resolving]
  - Fatigue [Unknown]
  - Lethargy [Unknown]
  - Back pain [Not Recovered/Not Resolved]
  - Diarrhoea [Recovering/Resolving]
  - Depression [Recovering/Resolving]
  - Affective disorder [Unknown]
  - Anxiety [Recovering/Resolving]
  - Night sweats [Recovering/Resolving]
  - Abnormal dreams [Unknown]
  - Constipation [Recovering/Resolving]
  - Headache [Unknown]

NARRATIVE: CASE EVENT DATE: 20191219
